FAERS Safety Report 15964099 (Version 1)
Quarter: 2019Q1

REPORT INFORMATION
  Report Type: Spontaneous
  Country: AU (occurrence: AU)
  Receive Date: 20190214
  Receipt Date: 20190214
  Transmission Date: 20190417
  Serious: Yes (Hospitalization)
  Sender: FDA-Public Use
  Company Number: AU-MYLANLABS-2019M1014019

PATIENT
  Age: 56 Year
  Sex: Male

DRUGS (9)
  1. CYTARABINE. [Suspect]
     Active Substance: CYTARABINE
     Indication: PLASMA CELL MYELOMA RECURRENT
     Dosage: RECEIVED FOUR DOSES ON DAYS 2 TO 3
     Route: 037
     Dates: start: 201703
  2. METHOTREXATE. [Suspect]
     Active Substance: METHOTREXATE
     Dosage: RECEIVED FIVE DOSES OF TRIPLE INTRATHECAL CHEMOTHERAPY INCLUDING METHOTREXATE, CYTARABINE AND DEX...
     Route: 037
  3. CYTARABINE. [Suspect]
     Active Substance: CYTARABINE
     Dosage: RECEIVED FIVE DOSES OF TRIPLE INTRATHECAL CHEMOTHERAPY INCLUDING METHOTREXATE, CYTARABINE AND DEX...
     Route: 037
  4. DEXAMETHASONE. [Concomitant]
     Active Substance: DEXAMETHASONE
     Indication: PLASMA CELL MYELOMA RECURRENT
     Dosage: RECEIVED FIVE DOSES OF TRIPLE INTRATHECAL CHEMOTHERAPY INCLUDING METHOTREXATE, CYTARABINE AND DEX...
     Route: 037
  5. DEXAMETHASONE. [Concomitant]
     Active Substance: DEXAMETHASONE
     Dosage: RECEIVED ON DAYS DAYS 1, 8, 15 AND 22
     Route: 048
  6. METHOTREXATE. [Suspect]
     Active Substance: METHOTREXATE
     Indication: PLASMA CELL MYELOMA RECURRENT
     Dosage: DAY 1, HIGH DOSE
     Route: 042
     Dates: start: 201703
  7. METHOTREXATE. [Suspect]
     Active Substance: METHOTREXATE
     Dosage: RECEIVED FOUR DOSES ON DAYS 2 TO 3
     Route: 037
     Dates: start: 201703
  8. MELPHALAN. [Concomitant]
     Active Substance: MELPHALAN
     Indication: PRODUCT USED FOR UNKNOWN INDICATION
     Route: 065
     Dates: start: 2011
  9. LENALIDOMIDE [Suspect]
     Active Substance: LENALIDOMIDE
     Indication: PLASMA CELL MYELOMA RECURRENT
     Dosage: RECEIVED ON DAYS 1 TO 21
     Route: 048

REACTIONS (3)
  - Enterocolitis [Unknown]
  - Febrile neutropenia [Unknown]
  - Intestinal pseudo-obstruction [Unknown]
